FAERS Safety Report 12988697 (Version 4)
Quarter: 2017Q1

REPORT INFORMATION
  Report Type: Report from Study
  Country: DE (occurrence: DE)
  Receive Date: 20161130
  Receipt Date: 20170202
  Transmission Date: 20170428
  Serious: Yes (Hospitalization, Other)
  Sender: FDA-Public Use
  Company Number: DE-AMGEN-DEUSL2016167634

PATIENT
  Age: 60 Year
  Sex: Male
  Weight: 93.4 kg

DRUGS (7)
  1. 5-FU [Concomitant]
     Active Substance: FLUOROURACIL
     Dosage: 600 MG/M2, Q2WK (22 H INFUSION)
     Route: 041
     Dates: start: 20150812, end: 20151105
  2. 5-FU [Concomitant]
     Active Substance: FLUOROURACIL
     Indication: COLON CANCER
     Dosage: 400 MG/M2, Q2WK
     Route: 040
     Dates: start: 20150812, end: 20151105
  3. VECTIBIX [Suspect]
     Active Substance: PANITUMUMAB
     Indication: COLON CANCER
     Dosage: 6 MG/KG, UNK
     Route: 042
     Dates: start: 20150812, end: 20150909
  4. CALCIUMFOLINAT [Concomitant]
     Active Substance: LEUCOVORIN CALCIUM
     Indication: COLON CANCER
     Dosage: 200 MG/M2, Q2WK
     Dates: start: 20150812, end: 20151105
  5. FENISTIL 24 [Concomitant]
     Dosage: 4 MG, AS NECESSARY
     Route: 048
     Dates: start: 20160910
  6. VECTIBIX [Suspect]
     Active Substance: PANITUMUMAB
     Dosage: 6 MG/KG, UNK
     Route: 042
     Dates: start: 2015, end: 20151105
  7. OXALIPLATIN. [Concomitant]
     Active Substance: OXALIPLATIN
     Indication: COLON CANCER
     Dosage: 85 MG/M2, Q2WK
     Dates: start: 20150812, end: 20151105

REACTIONS (2)
  - Dermatitis infected [Recovered/Resolved]
  - Conjunctivitis bacterial [Recovered/Resolved]

NARRATIVE: CASE EVENT DATE: 20150910
